FAERS Safety Report 7493602-X (Version None)
Quarter: 2011Q2

REPORT INFORMATION
  Report Type: 
  Country: None (occurrence: None)
  Receive Date: 20110520
  Receipt Date: 20110517
  Transmission Date: 20111010
  Serious: Yes (Death, Hospitalization)
  Sender: FDA-Public Use
  Company Number: PHFR2011GB02682

PATIENT
  Sex: Male

DRUGS (4)
  1. VENLAFAXINE [Concomitant]
     Dosage: UNK
     Route: 048
  2. CLOZARIL [Suspect]
     Indication: SCHIZOPHRENIA
     Route: 048
     Dates: start: 20020417
  3. ADCAL-D3 [Concomitant]
  4. LORAZEPAM [Concomitant]
     Indication: DEPRESSION
     Dosage: UNK

REACTIONS (2)
  - VIRAL INFECTION [None]
  - PNEUMONIA [None]
